FAERS Safety Report 4727023-7 (Version None)
Quarter: 2005Q3

REPORT INFORMATION
  Report Type: 
  Country: None (occurrence: None)
  Receive Date: 20050726
  Receipt Date: 20050713
  Transmission Date: 20060218
  Serious: Yes (Hospitalization)
  Sender: FDA-Public Use
  Company Number: 2005103170

PATIENT
  Sex: Male

DRUGS (4)
  1. CELEBREX [Suspect]
     Indication: ANALGESIC EFFECT
     Dosage: ORAL
     Route: 048
  2. CELEBREX [Suspect]
     Indication: INFLAMMATION
     Dosage: ORAL
     Route: 048
  3. BEXTRA [Suspect]
     Indication: ANALGESIC EFFECT
     Dosage: ORAL
     Route: 048
  4. BEXTRA [Suspect]
     Indication: INFLAMMATION
     Dosage: ORAL
     Route: 048

REACTIONS (5)
  - CARDIAC ARREST [None]
  - CARDIAC DISORDER [None]
  - INJURY [None]
  - LUNG DISORDER [None]
  - PAIN [None]
